FAERS Safety Report 6736540-X (Version None)
Quarter: 2010Q2

REPORT INFORMATION
  Report Type: 
  Country: None (occurrence: None)
  Receive Date: 20100519
  Receipt Date: 20100506
  Transmission Date: 20101027
  Serious: Yes (Other)
  Sender: FDA-Public Use
  Company Number: 2010AL002719

PATIENT
  Age: 47 Year
  Sex: Male

DRUGS (1)
  1. TRAMADOL HYDROCHLORIDE [Suspect]
     Indication: HEADACHE
     Dosage: 100 MG;X1; RTL
     Route: 054
     Dates: start: 20100428, end: 20100428

REACTIONS (5)
  - CONVULSION [None]
  - FOAMING AT MOUTH [None]
  - INCORRECT ROUTE OF DRUG ADMINISTRATION [None]
  - IRRITABILITY [None]
  - ROAD TRAFFIC ACCIDENT [None]
